FAERS Safety Report 8426420-6 (Version None)
Quarter: 2012Q2

REPORT INFORMATION
  Report Type: 
  Country: None (occurrence: None)
  Receive Date: 20120524
  Receipt Date: 20120508
  Transmission Date: 20120825
  Serious: Yes (Other)
  Sender: FDA-Public Use
  Company Number: 2012032340

PATIENT
  Age: 92 Year
  Sex: Male

DRUGS (4)
  1. PRIVIGEN [Suspect]
     Indication: GUILLAIN-BARRE SYNDROME
     Dosage: 1 G/KG/DAY X 2 DAYS, 1 G/KG/DAY X 2 DAYS, 1 G/KG/DAY X 2 DAYS
     Route: 042
     Dates: start: 20120407, end: 20120407
  2. PRIVIGEN [Suspect]
     Indication: GUILLAIN-BARRE SYNDROME
     Dosage: 1 G/KG/DAY X 2 DAYS, 1 G/KG/DAY X 2 DAYS, 1 G/KG/DAY X 2 DAYS
     Route: 042
     Dates: start: 20120405, end: 20120407
  3. PRIVIGEN [Suspect]
     Indication: GUILLAIN-BARRE SYNDROME
     Dosage: 1 G/KG/DAY X 2 DAYS, 1 G/KG/DAY X 2 DAYS, 1 G/KG/DAY X 2 DAYS
     Route: 042
     Dates: start: 20120406, end: 20120407
  4. PRIVIGEN [Suspect]

REACTIONS (2)
  - HEADACHE [None]
  - NEUTROPENIA [None]
